FAERS Safety Report 6805147-8 (Version None)
Quarter: 2010Q2

REPORT INFORMATION
  Report Type: 
  Country: None (occurrence: None)
  Receive Date: 20100628
  Receipt Date: 20070910
  Transmission Date: 20101027
  Serious: Yes (Other)
  Sender: FDA-Public Use
  Company Number: US-PFIZER INC-2007075674

PATIENT
  Sex: Male
  Weight: 102 kg

DRUGS (6)
  1. GEODON [Suspect]
     Indication: BIPOLAR DISORDER
     Dates: start: 20070701, end: 20070908
  2. LAMICTAL [Concomitant]
  3. LITHIUM [Concomitant]
     Dates: end: 20070101
  4. COGENTIN [Concomitant]
  5. LORAZEPAM [Concomitant]
  6. BUSPAR [Concomitant]

REACTIONS (3)
  - ELECTROCARDIOGRAM QT PROLONGED [None]
  - NEUROLEPTIC MALIGNANT SYNDROME [None]
  - WHITE BLOOD CELL COUNT DECREASED [None]
